FAERS Safety Report 7100144-X (Version None)
Quarter: 2010Q4

REPORT INFORMATION
  Report Type: 
  Country: None (occurrence: None)
  Receive Date: 20101112
  Receipt Date: 20100512
  Transmission Date: 20110411
  Serious: No
  Sender: FDA-Public Use
  Company Number: A0859382A

PATIENT
  Age: 71 Year
  Sex: Female

DRUGS (3)
  1. CARVEDILOL [Suspect]
     Dosage: 25MG PER DAY
     Route: 048
     Dates: start: 20091101, end: 20091201
  2. INSULIN [Concomitant]
  3. LIPITOR [Concomitant]

REACTIONS (1)
  - MALAISE [None]
